FAERS Safety Report 8075417-7 (Version None)
Quarter: 2012Q1

REPORT INFORMATION
  Report Type: 
  Country: None (occurrence: None)
  Receive Date: 20120127
  Receipt Date: 20120120
  Transmission Date: 20120608
  Serious: Yes (Hospitalization, Other)
  Sender: FDA-Public Use
  Company Number: JP-PFIZER INC-2011313144

PATIENT
  Age: 56 Year
  Sex: Male

DRUGS (6)
  1. AMANTADINE [Concomitant]
     Dosage: UNK
     Route: 048
  2. PERGOLIDE MESYLATE [Suspect]
     Indication: PARKINSON'S DISEASE
     Dosage: UNK
     Route: 048
  3. SELEGILINE [Concomitant]
     Dosage: UNK
     Route: 048
  4. CABERGOLINE [Suspect]
     Indication: PARKINSON'S DISEASE
     Dosage: UNK
     Route: 048
  5. ROPINIROLE [Suspect]
     Indication: PARKINSON'S DISEASE
     Dosage: UNK
     Route: 048
  6. ENTACAPONE [Concomitant]
     Dosage: UNK
     Route: 048

REACTIONS (4)
  - HYPERSEXUALITY [None]
  - IRRITABILITY [None]
  - NIGHTMARE [None]
  - DRUG WITHDRAWAL SYNDROME [None]
